FAERS Safety Report 7548038-X (Version None)
Quarter: 2011Q2

REPORT INFORMATION
  Report Type: 
  Country: None (occurrence: None)
  Receive Date: 20110524
  Receipt Date: 20110228
  Transmission Date: 20111010
  Serious: No
  Sender: FDA-Public Use
  Company Number: 026631

PATIENT
  Sex: Male
  Weight: 70.3 kg

DRUGS (15)
  1. NITROGLYCERIN [Concomitant]
  2. OMEPRAZOLE [Concomitant]
  3. CIMZIA [Suspect]
     Indication: CROHN'S DISEASE
     Dosage: 400 MG 1X/ MONTH SUBCUTANEOUS
     Route: 058
     Dates: start: 20090216
  4. ALPRAZOLAM [Concomitant]
  5. CARAFATE [Concomitant]
  6. HYDROXYZINE [Concomitant]
  7. ENTOCORT EC [Concomitant]
  8. LABETALOL HCL [Concomitant]
  9. GALENIC /CALCIUM/VITAMIN D/C [Concomitant]
  10. MULTI-VITAMINS [Concomitant]
  11. HYDROMORPHONE HCL [Concomitant]
  12. AMLODIPINE [Concomitant]
  13. VITAMIN B-12 [Concomitant]
  14. WELLBUTRIN [Concomitant]
  15. LYRICA [Concomitant]

REACTIONS (3)
  - FREQUENT BOWEL MOVEMENTS [None]
  - CHEST PAIN [None]
  - ABDOMINAL PAIN [None]
